FAERS Safety Report 25173421 (Version 1)
Quarter: 2025Q2

REPORT INFORMATION
  Report Type: Report from Study
  Country: US (occurrence: US)
  Receive Date: 20250408
  Receipt Date: 20250408
  Transmission Date: 20250716
  Serious: No
  Sender: SANDOZ
  Company Number: US-SANDOZ-SDZ2025US020613

PATIENT
  Age: 11 Year
  Sex: Male

DRUGS (4)
  1. OMNITROPE [Suspect]
     Active Substance: SOMATROPIN
     Indication: Hypopituitarism
     Dosage: 1.5 MG, QD (10 MG/1.5 ML)
     Route: 058
     Dates: start: 202503
  2. OMNITROPE [Suspect]
     Active Substance: SOMATROPIN
     Indication: Hypopituitarism
     Dosage: 1.5 MG, QD (10 MG/1.5 ML)
     Route: 058
     Dates: start: 202503
  3. OMNITROPE [Suspect]
     Active Substance: SOMATROPIN
     Dosage: 1.5 MG, QD  (10 MG/1.5 ML)
     Route: 058
  4. OMNITROPE [Suspect]
     Active Substance: SOMATROPIN
     Dosage: 1.5 MG, QD  (10 MG/1.5 ML)
     Route: 058

REACTIONS (2)
  - Injection site pain [Unknown]
  - Device difficult to use [Unknown]

NARRATIVE: CASE EVENT DATE: 20250301
